FAERS Safety Report 7307872-1 (Version None)
Quarter: 2011Q1

REPORT INFORMATION
  Report Type: 
  Country: None (occurrence: None)
  Receive Date: 20110223
  Receipt Date: 20110119
  Transmission Date: 20110831
  Serious: Yes (Other)
  Sender: FDA-Public Use
  Company Number: GB-AMGEN-US360321

PATIENT
  Age: 60 Year
  Sex: Female
  Weight: 53 kg

DRUGS (7)
  1. DICLOFENAC [Suspect]
     Dosage: 50 MG, QD
     Route: 048
     Dates: start: 20041201, end: 20081030
  2. LEFLUNOMIDE [Suspect]
     Indication: RHEUMATOID ARTHRITIS
     Dosage: 20 MG, UNK
     Route: 048
     Dates: start: 20041201, end: 20090107
  3. CALCICHEW-D3 [Concomitant]
     Indication: OSTEOPOROSIS PROPHYLAXIS
     Dosage: 1 DF, BID
     Route: 048
     Dates: end: 20090101
  4. ALENDRONIC ACID [Suspect]
     Dosage: 70 MG, UNK
     Route: 048
     Dates: start: 20060201
  5. ENBREL [Suspect]
     Indication: OSTEOPOROSIS PROPHYLAXIS
     Dosage: 50 MG, UNK
     Route: 058
     Dates: start: 20070110, end: 20090110
  6. LANSOPRAZOLE [Suspect]
     Dosage: 15 MG, QD
     Route: 048
     Dates: start: 20070101, end: 20081001
  7. ATORVASTATIN [Concomitant]
     Indication: BLOOD CHOLESTEROL INCREASED
     Dosage: 20 MG, UNK
     Route: 048
     Dates: start: 20080101, end: 20090101

REACTIONS (3)
  - RENAL FAILURE [None]
  - TUBULOINTERSTITIAL NEPHRITIS [None]
  - BLOOD CREATINE INCREASED [None]
